FAERS Safety Report 8080654-1 (Version None)
Quarter: 2012Q1

REPORT INFORMATION
  Report Type: 
  Country: None (occurrence: None)
  Receive Date: 20120130
  Receipt Date: 20120117
  Transmission Date: 20120608
  Serious: Yes (Disabling, Other)
  Sender: FDA-Public Use
  Company Number: PHHY2012JP004896

PATIENT
  Sex: Male

DRUGS (8)
  1. AFINITOR [Suspect]
     Indication: METASTATIC RENAL CELL CARCINOMA
     Dosage: 10 MG,DAILY
     Route: 048
     Dates: start: 20110802, end: 20110914
  2. SUNITINIB MALATE [Concomitant]
     Indication: METASTATIC RENAL CELL CARCINOMA
     Dosage: 50 MG, UNK
     Route: 048
     Dates: start: 20110131, end: 20110726
  3. NEO-MERCAZOLE TAB [Concomitant]
     Dosage: 05 MG, UNK
     Route: 048
  4. MICARDIS [Concomitant]
     Dosage: 40 MG, UNK
     Route: 048
  5. AFINITOR [Suspect]
     Dosage: 05 MG, DAILY
     Route: 048
     Dates: start: 20110926
  6. TAMSULOSIN HCL [Concomitant]
     Dosage: 0.2 MG, UNK
     Route: 048
  7. GLYCYRON [Concomitant]
     Indication: PROPHYLAXIS
     Dosage: 25 MG, UNK
     Route: 048
     Dates: start: 20110131
  8. KENALOG [Concomitant]
     Indication: PROPHYLAXIS

REACTIONS (5)
  - STOMATITIS [None]
  - PLATELET COUNT DECREASED [None]
  - DACRYOSTENOSIS ACQUIRED [None]
  - NEOPLASM PROGRESSION [None]
  - NEOPLASM MALIGNANT [None]
